FAERS Safety Report 6903372-9 (Version None)
Quarter: 2010Q3

REPORT INFORMATION
  Report Type: 
  Country: None (occurrence: None)
  Receive Date: 20100803
  Receipt Date: 20080923
  Transmission Date: 20110219
  Serious: Yes (Other)
  Sender: FDA-Public Use
  Company Number: US-PFIZER INC-2008066394

PATIENT
  Sex: Female
  Weight: 50 kg

DRUGS (16)
  1. LYRICA [Suspect]
     Indication: BURNING SENSATION
     Dates: start: 20080701
  2. GLIPIZIDE [Concomitant]
  3. METHADONE HCL [Concomitant]
  4. MONTELUKAST [Concomitant]
  5. LIDODERM [Concomitant]
  6. VALSARTAN [Concomitant]
  7. ZOLOFT [Concomitant]
  8. ALBUTEROL [Concomitant]
  9. COMBIVENT [Concomitant]
  10. LIPITOR [Concomitant]
  11. ZETIA [Concomitant]
  12. ACTONEL [Concomitant]
  13. ADVAIR DISKUS 100/50 [Concomitant]
  14. NOVOLOG [Concomitant]
  15. LANTUS [Concomitant]
  16. VICODIN [Concomitant]

REACTIONS (10)
  - BURNING SENSATION [None]
  - DIZZINESS [None]
  - FATIGUE [None]
  - HEART RATE INCREASED [None]
  - HYPOTENSION [None]
  - PRURITUS [None]
  - RASH [None]
  - RESTLESSNESS [None]
  - SKIN DISCOLOURATION [None]
  - URTICARIA [None]
